FAERS Safety Report 12297909 (Version 4)
Quarter: 2016Q3

REPORT INFORMATION
  Report Type: Spontaneous
  Country: US (occurrence: US)
  Receive Date: 20160422
  Receipt Date: 20160720
  Transmission Date: 20161109
  Serious: No
  Sender: FDA-Public Use
  Company Number: US-PFIZER INC-2016205988

PATIENT
  Age: 78 Year
  Sex: Male
  Weight: 102 kg

DRUGS (14)
  1. LYRICA [Suspect]
     Active Substance: PREGABALIN
     Indication: PARAESTHESIA
     Dosage: ONE 75MG CAPSULE TWICE A DAY
     Route: 048
  2. PERCOCET [Concomitant]
     Active Substance: ACETAMINOPHEN\OXYCODONE HYDROCHLORIDE
     Dosage: UNK
  3. VITAMIN D [Concomitant]
     Active Substance: CHOLECALCIFEROL
     Dosage: UNK
  4. NIACIN. [Concomitant]
     Active Substance: NIACIN
     Dosage: UNK
  5. LYRICA [Suspect]
     Active Substance: PREGABALIN
     Indication: NEURALGIA
     Dosage: STARTED ON LYRICA 75MG THREE TIMES A DAY
  6. LYRICA [Suspect]
     Active Substance: PREGABALIN
     Dosage: A COUPLE OF TIMES, HE TOOK THREE A DAY
     Dates: start: 2015
  7. LYRICA [Suspect]
     Active Substance: PREGABALIN
     Dosage: 75 MG, 2X/DAY
     Dates: start: 201604
  8. DOXYCYCLINE. [Concomitant]
     Active Substance: DOXYCYCLINE
     Dosage: UNK
  9. TYLENOL [Concomitant]
     Active Substance: ACETAMINOPHEN
     Indication: HEADACHE
     Dosage: TWO 500MG TABLET MAYBE 1-2 TIMES A MONTH
     Route: 048
  10. ASA [Concomitant]
     Active Substance: ASPIRIN
     Dosage: UNK
  11. FLOMAX [Concomitant]
     Active Substance: TAMSULOSIN HYDROCHLORIDE
     Dosage: UNK
  12. LEVOTHYROXINE. [Concomitant]
     Active Substance: LEVOTHYROXINE
     Dosage: UNK
  13. LOVASTATIN. [Concomitant]
     Active Substance: LOVASTATIN
     Dosage: UNK
  14. SERTRALINE [Concomitant]
     Active Substance: SERTRALINE HYDROCHLORIDE
     Dosage: UNK
     Dates: end: 2015

REACTIONS (7)
  - Drug hypersensitivity [Unknown]
  - Vision blurred [Recovered/Resolved]
  - Intentional product misuse [Recovered/Resolved]
  - Visual impairment [Recovered/Resolved]
  - Pre-existing condition improved [Not Recovered/Not Resolved]
  - Therapeutic response unexpected [Unknown]
  - Paraesthesia [Recovered/Resolved]

NARRATIVE: CASE EVENT DATE: 2014
